FAERS Safety Report 4351052-9 (Version None)
Quarter: 2004Q2

REPORT INFORMATION
  Report Type: 
  Country: None (occurrence: None)
  Receive Date: 20040429
  Receipt Date: 20040309
  Transmission Date: 20050107
  Serious: Yes (Hospitalization)
  Sender: FDA-Public Use
  Company Number: 2004-113677-NL

PATIENT
  Age: 32 Year
  Sex: Female
  Weight: 59 kg

DRUGS (2)
  1. NUVARING [Suspect]
     Indication: CONTRACEPTION
     Dosage: DF DAILY VAGINAL
     Route: 067
     Dates: start: 20031001, end: 20040201
  2. AVLIMIL (HERBAL) [Concomitant]

REACTIONS (1)
  - PULMONARY EMBOLISM [None]
